FAERS Safety Report 6678628-8 (Version None)
Quarter: 2010Q2

REPORT INFORMATION
  Report Type: 
  Country: None (occurrence: None)
  Receive Date: 20100413
  Receipt Date: 20100406
  Transmission Date: 20101027
  Serious: Yes (Hospitalization)
  Sender: FDA-Public Use
  Company Number: DE-JNJFOC-20100204699

PATIENT
  Age: 48 Year
  Sex: Female

DRUGS (3)
  1. HALDOL DECANOAT [Suspect]
     Indication: MANIA
     Route: 042
  2. SEROQUEL [Concomitant]
     Route: 048
  3. OLANZAPINE [Concomitant]
     Route: 048

REACTIONS (1)
  - DRUG ADMINISTRATION ERROR [None]
